FAERS Safety Report 17076416 (Version 1)
Quarter: 2019Q4

REPORT INFORMATION
  Report Type: Spontaneous
  Country: US (occurrence: US)
  Receive Date: 20191126
  Receipt Date: 20191126
  Transmission Date: 20200122
  Serious: No
  Sender: FDA-Public Use
  Company Number: US-PERRIGO-19US013711

PATIENT
  Age: 86 Year
  Sex: Female
  Weight: 77.1 kg

DRUGS (3)
  1. NYSTATIN AND TRIAMCINOLONE ACETONIDE [Suspect]
     Active Substance: NYSTATIN\TRIAMCINOLONE ACETONIDE
     Indication: FUNGAL INFECTION
     Dosage: 1 APPLICATION, BID
     Route: 061
     Dates: start: 20191107
  2. NYSTATIN AND TRIAMCINOLONE ACETONIDE [Suspect]
     Active Substance: NYSTATIN\TRIAMCINOLONE ACETONIDE
     Indication: RASH
  3. SULFA                              /00076401/ [Concomitant]
     Active Substance: SULFADIAZINE
     Indication: FUNGAL SKIN INFECTION
     Dosage: UNK
     Route: 065
     Dates: start: 20191106

REACTIONS (2)
  - Application site pruritus [Not Recovered/Not Resolved]
  - Application site pain [Not Recovered/Not Resolved]

NARRATIVE: CASE EVENT DATE: 20191107
